FAERS Safety Report 8851129 (Version 1)
Quarter: 2012Q4

REPORT INFORMATION
  Report Type: 
  Country: US (occurrence: US)
  Receive Date: 20121020
  Receipt Date: 20121020
  Transmission Date: 20130627
  Serious: Yes (Other)
  Sender: FDA-Public Use
  Company Number: US-009507513-1210USA004963

PATIENT
  Sex: Female

DRUGS (2)
  1. FOSAMAX PLUS D [Suspect]
     Dosage: 70/2800 mg
     Route: 048
     Dates: start: 200906
  2. VITAMIN D (UNSPECIFIED) [Concomitant]

REACTIONS (1)
  - Leukaemia [Not Recovered/Not Resolved]
